FAERS Safety Report 5815368-9 (Version None)
Quarter: 2008Q3

REPORT INFORMATION
  Report Type: 
  Country: None (occurrence: None)
  Receive Date: 20080718
  Receipt Date: 20080708
  Transmission Date: 20090109
  Serious: Yes (Other)
  Sender: FDA-Public Use
  Company Number: US-PFIZER INC-2008038164

PATIENT
  Sex: Female
  Weight: 108 kg

DRUGS (17)
  1. CHANTIX [Suspect]
  2. ALL OTHER THERAPEUTIC PRODUCTS [Suspect]
  3. ALBUTEROL [Concomitant]
     Route: 055
  4. ATIVAN [Concomitant]
     Route: 048
  5. CARISOPRODOL [Concomitant]
     Route: 048
  6. COMBIVENT [Concomitant]
     Route: 055
  7. HYDROCHLOROTHIAZIDE [Concomitant]
     Route: 048
  8. KEPPRA [Concomitant]
     Route: 048
  9. NEURONTIN [Concomitant]
     Route: 048
  10. NITROGLYCERIN [Concomitant]
     Route: 060
  11. PEPCID [Concomitant]
     Route: 048
  12. PLAVIX [Concomitant]
     Route: 048
  13. PRAVACHOL [Concomitant]
     Route: 048
  14. QUINAPRIL [Concomitant]
     Route: 048
  15. QUININE SULFATE [Concomitant]
     Route: 048
  16. TOPROL-XL [Concomitant]
     Route: 048
  17. ACETAMINOPHEN W/ CODEINE [Concomitant]
     Route: 048

REACTIONS (4)
  - AGITATION [None]
  - DEPRESSION [None]
  - HOMICIDAL IDEATION [None]
  - SUICIDAL BEHAVIOUR [None]
